FAERS Safety Report 9982187 (Version 1)
Quarter: 2014Q1

REPORT INFORMATION
  Report Type: Report from Study
  Country: US (occurrence: US)
  Receive Date: 20140307
  Receipt Date: 20140307
  Transmission Date: 20141002
  Serious: No
  Sender: FDA-Public Use
  Company Number: US-ABBVIE-13P-163-1177985-00

PATIENT
  Age: 70 Year
  Sex: Female

DRUGS (8)
  1. HUMIRA [Suspect]
     Indication: CROHN^S DISEASE
     Dosage: LOADING DOSE
     Dates: start: 20131108, end: 20131108
  2. HUMIRA [Suspect]
     Dosage: LOADING DOSE
     Dates: start: 20131122, end: 20131122
  3. HUMIRA [Suspect]
  4. COUMADIN [Concomitant]
     Indication: PULMONARY EMBOLISM
     Route: 048
  5. METOPROLOL [Concomitant]
     Indication: HYPERTENSION
     Route: 048
  6. CLONAZEPAM [Concomitant]
     Indication: RESTLESS LEGS SYNDROME
     Dosage: AT SLEEP
     Route: 048
  7. ASACOL [Concomitant]
     Indication: CROHN^S DISEASE
     Route: 048
  8. CALCIUM [Concomitant]
     Indication: MINERAL SUPPLEMENTATION

REACTIONS (4)
  - Feeling abnormal [Not Recovered/Not Resolved]
  - Dizziness [Unknown]
  - Injection site rash [Recovered/Resolved]
  - Diarrhoea [Recovered/Resolved]
